FAERS Safety Report 4644505-7 (Version None)
Quarter: 2005Q2

REPORT INFORMATION
  Report Type: 
  Country: None (occurrence: None)
  Receive Date: 20050422
  Receipt Date: 20050408
  Transmission Date: 20051028
  Serious: Yes (Other)
  Sender: FDA-Public Use
  Company Number: 2005S1000096

PATIENT
  Age: 60 Year
  Sex: Female

DRUGS (1)
  1. ACITRETIN (ACITRETIN) [Suspect]
     Indication: PUSTULAR PSORIASIS
     Dosage: 25 MG;QD; PO
     Route: 048
     Dates: start: 20040101

REACTIONS (1)
  - BLADDER CANCER RECURRENT [None]
